FAERS Safety Report 5451789-4 (Version None)
Quarter: 2007Q3

REPORT INFORMATION
  Report Type: 
  Country: None (occurrence: None)
  Receive Date: 20070913
  Receipt Date: 20070907
  Transmission Date: 20080115
  Serious: Yes (Hospitalization)
  Sender: FDA-Public Use
  Company Number: JP-MERCK-0706USA03938

PATIENT
  Age: 65 Year
  Sex: Male

DRUGS (14)
  1. PRIMAXIN [Suspect]
     Indication: BACTERIAL INFECTION
     Route: 042
     Dates: start: 20030711, end: 20070713
  2. PRIMAXIN [Suspect]
     Route: 042
     Dates: start: 20070701
  3. PRIMAXIN [Suspect]
     Route: 042
     Dates: start: 20030719, end: 20070817
  4. AMIKACINA [Concomitant]
     Route: 042
  5. CEFOPERAZONE SODIUM AND SULBACTAM SODIUM [Concomitant]
     Route: 065
  6. CARBENIN [Concomitant]
     Route: 042
  7. MEROPENEM [Suspect]
     Route: 042
  8. MINOCYCLINE HYDROCHLORIDE [Suspect]
     Route: 051
     Dates: start: 20030714, end: 20031008
  9. RIFAMPIN [Suspect]
     Route: 048
     Dates: start: 20030714, end: 20030716
  10. FOY [Suspect]
     Route: 042
     Dates: start: 20030716, end: 20030804
  11. CIPROFLOXACIN [Concomitant]
     Route: 042
     Dates: start: 20030725, end: 20030816
  12. CIPROFLOXACIN [Concomitant]
     Route: 042
     Dates: start: 20030817, end: 20031008
  13. OMEPRAZOLE [Suspect]
     Route: 051
     Dates: start: 20030715, end: 20030816
  14. FAMOTIDINE [Concomitant]
     Route: 051
     Dates: start: 20030711, end: 20030714

REACTIONS (3)
  - GASTROINTESTINAL HAEMORRHAGE [None]
  - RENAL IMPAIRMENT [None]
  - RENAL TUBULAR DISORDER [None]
